FAERS Safety Report 8566831-1 (Version None)
Quarter: 2012Q3

REPORT INFORMATION
  Report Type: 
  Country: None (occurrence: None)
  Receive Date: 20120803
  Receipt Date: 20110819
  Transmission Date: 20120928
  Serious: No
  Sender: FDA-Public Use
  Company Number: US-ABBOTT-11P-163-0848190-00

PATIENT
  Sex: Male

DRUGS (4)
  1. AMLODIPINE [Concomitant]
     Indication: BLOOD PRESSURE
  2. UNKNOWN NASAL SPRAY [Concomitant]
     Indication: HYPERSENSITIVITY
  3. BENAZEPRIL HYDROCHLORIDE [Concomitant]
     Indication: BLOOD PRESSURE
  4. NIASPAN [Suspect]
     Indication: BLOOD CHOLESTEROL
     Dates: start: 20110701, end: 20110818

REACTIONS (4)
  - HYPERTHYROIDISM [None]
  - FLUSHING [None]
  - URTICARIA [None]
  - PRURITUS GENERALISED [None]
